FAERS Safety Report 24396858 (Version 2)
Quarter: 2024Q4

REPORT INFORMATION
  Report Type: Report from Study
  Country: US (occurrence: US)
  Receive Date: 20241004
  Receipt Date: 20241025
  Transmission Date: 20250114
  Serious: Yes (Other)
  Sender: ROCHE
  Company Number: US-ROCHE-10000095985

PATIENT
  Age: 53 Year
  Sex: Female
  Weight: 71.2 kg

DRUGS (12)
  1. XOLAIR PFS [Suspect]
     Active Substance: OMALIZUMAB
     Indication: Asthma
     Route: 065
     Dates: end: 20230725
  2. XOLAIR PFS [Suspect]
     Active Substance: OMALIZUMAB
     Dosage: 150MG IN EACH ARM (TOTAL 300MG)
     Route: 058
     Dates: start: 2018
  3. ACETAMINOPHEN [Concomitant]
     Active Substance: ACETAMINOPHEN
  4. LIORESAL [Concomitant]
     Active Substance: BACLOFEN
  5. BIKTARVY [Concomitant]
     Active Substance: BICTEGRAVIR SODIUM\EMTRICITABINE\TENOFOVIR ALAFENAMIDE FUMARATE
  6. DIPHENHYDRAMINE [Concomitant]
     Active Substance: DIPHENHYDRAMINE
  7. JULUCA [Concomitant]
     Active Substance: DOLUTEGRAVIR SODIUM\RILPIVIRINE HYDROCHLORIDE
  8. EPIPEN [Concomitant]
     Active Substance: EPINEPHRINE
  9. ERGOCALCIFEROL [Concomitant]
     Active Substance: ERGOCALCIFEROL
  10. ESTRACE [Concomitant]
     Active Substance: ESTRADIOL
  11. SINGULAIR [Concomitant]
     Active Substance: MONTELUKAST SODIUM
  12. ANORO ELLIPTA [Concomitant]
     Active Substance: UMECLIDINIUM BROMIDE\VILANTEROL TRIFENATATE

REACTIONS (26)
  - Urinary tract infection [Unknown]
  - Foot deformity [Unknown]
  - Pain in extremity [Unknown]
  - Pain [Unknown]
  - Oesophageal atresia [Unknown]
  - Neurogenic bladder [Unknown]
  - HIV infection [Unknown]
  - Gastrooesophageal reflux disease [Unknown]
  - Vulvovaginal mycotic infection [Unknown]
  - Escherichia urinary tract infection [Unknown]
  - Anaphylactic reaction [Unknown]
  - Anxiety [Unknown]
  - Osteoporosis [Unknown]
  - Pyelonephritis acute [Unknown]
  - Flank pain [Unknown]
  - Rectal prolapse [Unknown]
  - Chronic obstructive pulmonary disease [Unknown]
  - Rhinitis [Unknown]
  - Upper-airway cough syndrome [Unknown]
  - Productive cough [Unknown]
  - Dyspnoea [Unknown]
  - Bronchitis [Unknown]
  - Candida infection [Unknown]
  - White blood cell count increased [Recovered/Resolved]
  - Haemoglobin increased [Recovered/Resolved]
  - Haematocrit increased [Recovered/Resolved]
